FAERS Safety Report 15254664 (Version 1)
Quarter: 2018Q3

REPORT INFORMATION
  Report Type: Spontaneous
  Country: US (occurrence: US)
  Receive Date: 20180717
  Receipt Date: 20180717
  Transmission Date: 20181010
  Serious: Yes (Hospitalization)
  Sender: FDA-Public Use
  Company Number: None

PATIENT
  Sex: Female

DRUGS (11)
  1. ALENDRONATE 70MG [Concomitant]
     Active Substance: ALENDRONATE SODIUM
  2. MYCOPHENOLIC [Suspect]
     Active Substance: MYCOPHENOLIC ACID
     Indication: RENAL TRANSPLANT
     Route: 048
     Dates: start: 20180501, end: 20180626
  3. FOLIC ACID 1MG [Concomitant]
  4. PROGESTERONE 200MG [Concomitant]
  5. SODIUM BICARBONATE 10GR [Concomitant]
  6. CALCITRIOL 0.25MCG [Concomitant]
  7. OXYBUTYNIN 10MG ER [Concomitant]
  8. PREDNISONE 10MG [Concomitant]
     Active Substance: PREDNISONE
  9. LEFLUNOMIDE 20MG [Concomitant]
     Active Substance: LEFLUNOMIDE
  10. SANTYL OINTMENT 250/GM [Concomitant]
  11. TACROLIMUS. [Suspect]
     Active Substance: TACROLIMUS
     Indication: RENAL TRANSPLANT
     Route: 048
     Dates: start: 20160322

REACTIONS (1)
  - Biopsy kidney [None]
